FAERS Safety Report 6621509-6 (Version None)
Quarter: 2010Q1

REPORT INFORMATION
  Report Type: 
  Country: None (occurrence: None)
  Receive Date: 20100223
  Receipt Date: 20091229
  Transmission Date: 20100710
  Serious: No
  Sender: FDA-Public Use
  Company Number: 8053470

PATIENT
  Sex: Male

DRUGS (1)
  1. CIMZIA [Suspect]
     Indication: CROHN'S DISEASE
     Dosage: 400 MG EVERY 28 DAYS SUBCUTANEOUS
     Route: 058
     Dates: start: 20090617, end: 20090101

REACTIONS (5)
  - COXSACKIE VIRUS TEST POSITIVE [None]
  - ECHO VIRUS INFECTION [None]
  - HAEMOPHILUS INFECTION [None]
  - LYMPHADENOPATHY [None]
  - PYREXIA [None]
